FAERS Safety Report 7659078-4 (Version None)
Quarter: 2011Q3

REPORT INFORMATION
  Report Type: 
  Country: None (occurrence: None)
  Receive Date: 20110805
  Receipt Date: 20110803
  Transmission Date: 20111222
  Serious: Yes (Death, Hospitalization)
  Sender: FDA-Public Use
  Company Number: US-B.I. PHARMACEUTICALS,INC./RIDGEFIELD-2011-BP-10694BP

PATIENT
  Sex: Female

DRUGS (2)
  1. PRADAXA [Suspect]
     Dosage: 225 MG
  2. PRADAXA [Suspect]
     Dosage: 150 MG
     Route: 048

REACTIONS (4)
  - DEATH [None]
  - TRANSIENT ISCHAEMIC ATTACK [None]
  - CONTUSION [None]
  - DIPLOPIA [None]
